FAERS Safety Report 6861884-0 (Version None)
Quarter: 2010Q3

REPORT INFORMATION
  Report Type: 
  Country: None (occurrence: None)
  Receive Date: 20100721
  Receipt Date: 20100706
  Transmission Date: 20110219
  Serious: Yes (Other)
  Sender: FDA-Public Use
  Company Number: NL-MYLANLABS-2010S1011914

PATIENT
  Age: 83 Year
  Sex: Female

DRUGS (7)
  1. CITALOPRAM HYDROBROMIDE [Suspect]
     Indication: DEPRESSION
     Route: 065
  2. CITALOPRAM HYDROBROMIDE [Suspect]
     Route: 065
  3. CARBASALATE CALCIUM [Concomitant]
     Route: 065
  4. CARBAMAZEPINE [Concomitant]
     Route: 065
  5. LEVETIRACETAM [Concomitant]
     Route: 065
  6. CALCIUM CARBONATE [Concomitant]
     Route: 065
  7. ALENDRONIC ACID [Concomitant]
     Route: 065

REACTIONS (2)
  - FALL [None]
  - HEPATOTOXICITY [None]
